FAERS Safety Report 16310157 (Version 1)
Quarter: 2019Q2

REPORT INFORMATION
  Report Type: Spontaneous
  Country: BR (occurrence: BR)
  Receive Date: 20190514
  Receipt Date: 20190514
  Transmission Date: 20190711
  Serious: Yes (Other)
  Sender: FDA-Public Use
  Company Number: BR-BAYER-2019-095004

PATIENT
  Age: 44 Year
  Sex: Female
  Weight: 54 kg

DRUGS (6)
  1. ULTRAVIST [Suspect]
     Active Substance: IOPROMIDE
     Indication: LOCALISED OEDEMA
  2. ULTRAVIST [Suspect]
     Active Substance: IOPROMIDE
     Indication: LOCALISED OEDEMA
  3. ULTRAVIST [Suspect]
     Active Substance: IOPROMIDE
     Indication: COMPUTERISED TOMOGRAM
     Dosage: 80 ML, ONCE
     Route: 042
     Dates: start: 20190430, end: 20190430
  4. ULTRAVIST [Suspect]
     Active Substance: IOPROMIDE
     Indication: COMPUTERISED TOMOGRAM
     Dosage: 20 ML, ONCE
     Route: 048
     Dates: start: 20190430, end: 20190430
  5. ULTRAVIST [Suspect]
     Active Substance: IOPROMIDE
     Indication: ABDOMINAL PAIN
  6. ULTRAVIST [Suspect]
     Active Substance: IOPROMIDE
     Indication: ABDOMINAL PAIN

REACTIONS (3)
  - Orbital oedema [None]
  - Nausea [Recovered/Resolved]
  - Face oedema [Recovered/Resolved]

NARRATIVE: CASE EVENT DATE: 20190430
